FAERS Safety Report 25716386 (Version 1)
Quarter: 2025Q3

REPORT INFORMATION
  Report Type: Spontaneous
  Country: US (occurrence: None)
  Receive Date: 20250822
  Receipt Date: 20250822
  Transmission Date: 20251021
  Serious: No
  Sender: FDA-CTU
  Company Number: None

PATIENT

DRUGS (2)
  1. NALOXONE [Suspect]
     Active Substance: NALOXONE
  2. SUBLOCADE [Concomitant]
     Active Substance: BUPRENORPHINE

REACTIONS (4)
  - Drug hypersensitivity [None]
  - Atrial fibrillation [None]
  - Oedema peripheral [None]
  - Lymphadenitis [None]
